FAERS Safety Report 9995989 (Version 1)
Quarter: 2014Q1

REPORT INFORMATION
  Report Type: Spontaneous
  Country: US (occurrence: None)
  Receive Date: 20140310
  Receipt Date: 20140310
  Transmission Date: 20141002
  Serious: Yes (Other)
  Sender: FDA-Public Use
  Company Number: None

PATIENT
  Age: 55 Year
  Sex: Female
  Weight: 105.24 kg

DRUGS (11)
  1. OMEPRAZOLE [Suspect]
     Indication: EROSIVE OESOPHAGITIS
     Route: 048
     Dates: start: 201105, end: 20140221
  2. OMEPRAZOLE [Suspect]
     Indication: GASTRIC ULCER
     Route: 048
     Dates: start: 201105, end: 20140221
  3. HYZAAR [Concomitant]
  4. ALLEGRA [Concomitant]
  5. CONCERTA [Concomitant]
  6. FLUCONAZOLE [Concomitant]
  7. NYSTELATALE [Concomitant]
  8. MIVALAY [Concomitant]
  9. ZIMMER TOLD KNEE AND PARTIAL KNEE IMPLEMENTS [Concomitant]
  10. PROBIOTIC [Concomitant]
  11. VITAMIN D3 [Concomitant]

REACTIONS (4)
  - Abdominal pain upper [None]
  - Drug ineffective [None]
  - Gastritis [None]
  - Disease recurrence [None]
